FAERS Safety Report 4934480-X (Version None)
Quarter: 2006Q1

REPORT INFORMATION
  Report Type: 
  Country: None (occurrence: None)
  Receive Date: 20060307
  Receipt Date: 20050802
  Transmission Date: 20060701
  Serious: No
  Sender: FDA-Public Use
  Company Number: US-BRISTOL-MYERS SQUIBB COMPANY-13062344

PATIENT
  Age: 30 Year
  Sex: Female

DRUGS (2)
  1. MONISTAT-1 VAG OINT 6.5% [Suspect]
     Indication: VULVOVAGINAL MYCOTIC INFECTION
     Route: 067
     Dates: start: 20050802, end: 20050802
  2. PRENATAL VITAMINS [Concomitant]

REACTIONS (2)
  - PREGNANCY [None]
  - VAGINAL DISCHARGE [None]
